FAERS Safety Report 25793505 (Version 2)
Quarter: 2025Q3

REPORT INFORMATION
  Report Type: Report from Study
  Country: US (occurrence: US)
  Receive Date: 20250911
  Receipt Date: 20250917
  Transmission Date: 20251020
  Serious: No
  Sender: BAUSCH AND LOMB
  Company Number: US-BAUSCHBL-2025BNL014891

PATIENT
  Age: 74 Year
  Sex: Female

DRUGS (1)
  1. MIEBO [Suspect]
     Active Substance: PERFLUOROHEXYLOCTANE
     Indication: Dry eye
     Dosage: MUST SEE PACKAGE INSERT FOR ADMIN INSTRUCTIONS
     Route: 047
     Dates: start: 20250703, end: 20250729

REACTIONS (6)
  - Biopsy [Unknown]
  - Hordeolum [Unknown]
  - Eye infection staphylococcal [Unknown]
  - Product complaint [Unknown]
  - Patient dissatisfaction with treatment [Unknown]
  - Inappropriate schedule of product administration [Unknown]

NARRATIVE: CASE EVENT DATE: 20250101
